FAERS Safety Report 23518216 (Version 1)
Quarter: 2024Q1

REPORT INFORMATION
  Report Type: Spontaneous
  Country: US (occurrence: US)
  Receive Date: 20240213
  Receipt Date: 20240213
  Transmission Date: 20240410
  Serious: No
  Sender: FDA-Public Use
  Company Number: US-BAXTER-2024BAX011820

PATIENT
  Sex: Female
  Weight: 42.177 kg

DRUGS (1)
  1. DIANEAL FOR PERITONEAL DIALYSIS [Suspect]
     Active Substance: ANHYDROUS DEXTROSE\CALCIUM CHLORIDE\MAGNESIUM CHLORIDE\SODIUM CHLORIDE\SODIUM LACTATE
     Dosage: 3 CYCLES WITH NIGHT FILL VOLUME 1000 ML AND LAST FILL 300 ML
     Route: 033
     Dates: start: 20231115

REACTIONS (5)
  - Papule [Unknown]
  - Scratch [Unknown]
  - Swelling [Unknown]
  - Rash [Unknown]
  - Pruritus [Unknown]
